FAERS Safety Report 16227151 (Version 2)
Quarter: 2019Q2

REPORT INFORMATION
  Report Type: Spontaneous
  Country: GB (occurrence: GB)
  Receive Date: 20190423
  Receipt Date: 20190531
  Transmission Date: 20190711
  Serious: Yes (Other)
  Sender: FDA-Public Use
  Company Number: GB-AUROBINDO-AUR-APL-2019-021301

PATIENT

DRUGS (20)
  1. BUSPIRONE [Suspect]
     Active Substance: BUSPIRONE HYDROCHLORIDE
     Indication: ANXIETY
  2. LORAZEPAM. [Suspect]
     Active Substance: LORAZEPAM
     Indication: DEPRESSION
  3. ESCITALOPRAM [Suspect]
     Active Substance: ESCITALOPRAM OXALATE
     Indication: DEPRESSION
     Dosage: CUTTING BITS TO 5 MG TO REACH APPROX. 12.5 MG IN 6 WEEKS
     Route: 065
     Dates: start: 2014
  4. MIRTAZAPINE. [Suspect]
     Active Substance: MIRTAZAPINE
     Indication: SUICIDAL IDEATION
  5. BUSPIRONE [Suspect]
     Active Substance: BUSPIRONE HYDROCHLORIDE
     Indication: SUICIDAL IDEATION
  6. LORAZEPAM. [Suspect]
     Active Substance: LORAZEPAM
     Indication: SUICIDAL IDEATION
  7. LORAZEPAM. [Suspect]
     Active Substance: LORAZEPAM
     Indication: EMETOPHOBIA
  8. ESCITALOPRAM [Suspect]
     Active Substance: ESCITALOPRAM OXALATE
     Indication: SUICIDAL IDEATION
     Dosage: REDUCE TO 12.5 MG OVER 8 WEEKS
     Route: 065
     Dates: start: 2017
  9. ESCITALOPRAM [Suspect]
     Active Substance: ESCITALOPRAM OXALATE
     Indication: ANXIETY
  10. MIRTAZAPINE. [Suspect]
     Active Substance: MIRTAZAPINE
     Indication: EMETOPHOBIA
  11. BUSPIRONE [Suspect]
     Active Substance: BUSPIRONE HYDROCHLORIDE
     Indication: EMETOPHOBIA
  12. LORAZEPAM. [Suspect]
     Active Substance: LORAZEPAM
     Indication: ANXIETY
  13. MIRTAZAPINE. [Suspect]
     Active Substance: MIRTAZAPINE
     Indication: PANIC ATTACK
  14. BUSPIRONE [Suspect]
     Active Substance: BUSPIRONE HYDROCHLORIDE
     Indication: PANIC ATTACK
     Dosage: UNK
     Route: 065
  15. MIRTAZAPINE. [Suspect]
     Active Substance: MIRTAZAPINE
     Indication: DEPRESSION
  16. LORAZEPAM. [Suspect]
     Active Substance: LORAZEPAM
     Indication: PANIC ATTACK
     Dosage: UNK
     Route: 065
  17. ESCITALOPRAM [Suspect]
     Active Substance: ESCITALOPRAM OXALATE
     Indication: EMETOPHOBIA
     Dosage: 15 MILLIGRAM
     Route: 065
  18. BUSPIRONE [Suspect]
     Active Substance: BUSPIRONE HYDROCHLORIDE
     Indication: DEPRESSION
  19. MIRTAZAPINE. [Suspect]
     Active Substance: MIRTAZAPINE
     Indication: ANXIETY
     Dosage: 15 MILLIGRAM
     Route: 065
  20. ESCITALOPRAM [Suspect]
     Active Substance: ESCITALOPRAM OXALATE
     Indication: PANIC ATTACK

REACTIONS (5)
  - Wrong technique in product usage process [Unknown]
  - Drug withdrawal syndrome [Unknown]
  - Mental disorder [Unknown]
  - Electrocardiogram QT prolonged [Unknown]
  - General physical health deterioration [Unknown]
